FAERS Safety Report 18066995 (Version 1)
Quarter: 2020Q3

REPORT INFORMATION
  Report Type: Report from Study
  Country: NL (occurrence: NL)
  Receive Date: 20200724
  Receipt Date: 20200724
  Transmission Date: 20201103
  Serious: Yes (Other)
  Sender: FDA-Public Use
  Company Number: NL-ASTRAZENECA-2020SE82216

PATIENT
  Sex: Male

DRUGS (1)
  1. BENRALIZUMAB. [Suspect]
     Active Substance: BENRALIZUMAB
     Indication: HYPEREOSINOPHILIC SYNDROME
     Route: 058

REACTIONS (2)
  - Off label use [Unknown]
  - Thrombocytopenia [Unknown]
